FAERS Safety Report 4873634-8 (Version None)
Quarter: 2005Q4

REPORT INFORMATION
  Report Type: 
  Country: None (occurrence: None)
  Receive Date: 20051201
  Receipt Date: 20050807
  Transmission Date: 20060501
  Serious: No
  Sender: FDA-Public Use
  Company Number: 2005PV000904

PATIENT
  Age: 33 Year
  Sex: Female
  Weight: 86.1834 kg

DRUGS (7)
  1. BYETTA [Suspect]
     Indication: DIABETES MELLITUS NON-INSULIN-DEPENDENT
     Dosage: 10 MCG; BID; SC
     Route: 058
     Dates: start: 20050806
  2. DETROL LA [Concomitant]
  3. LEVOXYL [Concomitant]
  4. ORTHO NOVUM 2/50 21 TAB [Concomitant]
  5. ZELNORM [Concomitant]
  6. VITAMIN B-12 [Concomitant]
  7. DRAMAMINE [Concomitant]

REACTIONS (5)
  - INJECTION SITE IRRITATION [None]
  - INJECTION SITE PAIN [None]
  - NAUSEA [None]
  - SOMNOLENCE [None]
  - VOMITING [None]
